FAERS Safety Report 5404785-7 (Version None)
Quarter: 2007Q3

REPORT INFORMATION
  Report Type: 
  Country: None (occurrence: None)
  Receive Date: 20070713
  Receipt Date: 20070319
  Transmission Date: 20080115
  Serious: Yes (Hospitalization)
  Sender: FDA-Public Use
  Company Number: REM_00324_2007

PATIENT
  Age: 46 Year
  Sex: Male
  Weight: 58.2 kg

DRUGS (17)
  1. REMODULIN [Suspect]
     Indication: PULMONARY HYPERTENSION
     Dosage: 162 NG/KG/MIN (0.0162 UG/KG,1 IN 1 MIN),INTRAVENOUS
     Route: 042
     Dates: start: 20051122, end: 20070225
  2. WARFARIN SODIUM [Concomitant]
  3. TRACLEER [Concomitant]
  4. REVATIO [Concomitant]
  5. DIGOXIN [Concomitant]
  6. SPIRONOLACTONE [Concomitant]
  7. PULMICORT [Concomitant]
  8. SEREVENT [Concomitant]
  9. FUROSEMIDE [Concomitant]
  10. IMODIUM /00384302/ (LOPERAMIDE HYDROCHLORIDE) [Concomitant]
  11. DARVOCET /00220901/(APOREX) [Concomitant]
  12. ENBREL [Concomitant]
  13. AMITRIPTYLINE HCL [Concomitant]
  14. PROTONIX /01263201/ (PANTOPRAZOLE) [Concomitant]
  15. PLAQUENIL /00072602/ (HYDROXYCHLOROQUINE PHOSPHATE) [Concomitant]
  16. ZOLOFT [Concomitant]
  17. PREDNISONE TAB [Concomitant]

REACTIONS (1)
  - BACTERIAL INFECTION [None]
